FAERS Safety Report 11311576 (Version 1)
Quarter: 2015Q3

REPORT INFORMATION
  Report Type: Spontaneous
  Country: US (occurrence: None)
  Receive Date: 20150723
  Receipt Date: 20150723
  Transmission Date: 20151125
  Serious: Yes (Death, Hospitalization, Other)
  Sender: FDA-Public Use
  Company Number: US-ZYDUS-008620

PATIENT
  Age: 81 Year
  Sex: Female

DRUGS (5)
  1. DIAZEPAM. [Concomitant]
     Active Substance: DIAZEPAM
  2. SERTRALINE [Suspect]
     Active Substance: SERTRALINE HYDROCHLORIDE
     Indication: ADJUSTMENT DISORDER
  3. RISPERIDONE (RISPERIDONE) [Suspect]
     Active Substance: RISPERIDONE
  4. VALSARTAN. [Concomitant]
     Active Substance: VALSARTAN
  5. SIMVASTATIN. [Concomitant]
     Active Substance: SIMVASTATIN

REACTIONS (8)
  - Agitation [None]
  - Toxicity to various agents [None]
  - Delirium [None]
  - Angiopathy [None]
  - Urinary tract infection [None]
  - Delusion [None]
  - Hallucinations, mixed [None]
  - Klebsiella infection [None]
